FAERS Safety Report 22062727 (Version 3)
Quarter: 2023Q1

REPORT INFORMATION
  Report Type: Spontaneous
  Country: US (occurrence: US)
  Receive Date: 20230306
  Receipt Date: 20230321
  Transmission Date: 20230417
  Serious: Yes (Hospitalization, Disabling, Other)
  Sender: FDA-Public Use
  Company Number: US-009507513-2302USA005248

PATIENT
  Age: 73 Year
  Sex: Female
  Weight: 83.447 kg

DRUGS (10)
  1. PNEUMOVAX 23 [Suspect]
     Active Substance: PNEUMOCOCCAL VACCINE, POLYVALENT 23
     Indication: Prophylaxis
     Dates: start: 20121217
  2. PNEUMOVAX 23 [Suspect]
     Active Substance: PNEUMOCOCCAL VACCINE, POLYVALENT 23
     Dates: start: 20181212
  3. KEYTRUDA [Suspect]
     Active Substance: PEMBROLIZUMAB
     Indication: Lung adenocarcinoma stage IV
     Dosage: UNK
     Dates: start: 20200720, end: 202109
  4. CARBOPLATIN [Suspect]
     Active Substance: CARBOPLATIN
     Dosage: UNK
  5. PEMETREXED [Suspect]
     Active Substance: PEMETREXED
     Dosage: UNK
  6. FAMOTIDINE [Concomitant]
     Active Substance: FAMOTIDINE
     Dosage: 40 MILLIGRAM (1 TABLET) EVERY NIGHT 30 : TABLET
     Route: 048
  7. SIMETHICONE (DIMETHICONE) [Concomitant]
     Active Substance: DIMETHICONE
     Dosage: 180 MILLIGRAM (1 CAPSULE) AT BEDTIME 30 : CAPSULE
     Route: 048
  8. HYZAAR [Concomitant]
     Active Substance: HYDROCHLOROTHIAZIDE\LOSARTAN POTASSIUM
     Dosage: 1 TABLET ONCE A DAY 90 : TABLET
     Route: 048
  9. SIMVASTATIN [Concomitant]
     Active Substance: SIMVASTATIN
     Dosage: 10 MILLIGRAM (1 TABLET) ONCE A DAY 90: TABLET
     Route: 048
  10. SYNTHROID [Concomitant]
     Active Substance: LEVOTHYROXINE SODIUM
     Dosage: 100 MICROGRAM (1 TABLET) ONCE A DAY 90 : TABLET
     Route: 048

REACTIONS (24)
  - Haemoptysis [Unknown]
  - Ataxia [Not Recovered/Not Resolved]
  - Malignant neoplasm progression [Unknown]
  - Hypothyroidism [Unknown]
  - Pneumonitis [Recovered/Resolved]
  - Dermatomyositis [Unknown]
  - Neuropathy peripheral [Unknown]
  - Inclusion body myositis [Unknown]
  - Paraneoplastic syndrome [Unknown]
  - Immunoglobulin therapy [Unknown]
  - Gait disturbance [Not Recovered/Not Resolved]
  - Muscular weakness [Not Recovered/Not Resolved]
  - Dysstasia [Unknown]
  - Burning sensation [Unknown]
  - Muscle atrophy [Unknown]
  - Hyperlipidaemia [Unknown]
  - Varicose vein [Unknown]
  - Hiatus hernia [Unknown]
  - Diverticulum [Unknown]
  - Large intestine polyp [Unknown]
  - Osteopenia [Unknown]
  - Hypertension [Unknown]
  - Myopathy [Unknown]
  - Limb discomfort [Unknown]

NARRATIVE: CASE EVENT DATE: 20210201
